FAERS Safety Report 16770267 (Version 1)
Quarter: 2019Q3

REPORT INFORMATION
  Report Type: Spontaneous
  Country: US (occurrence: US)
  Receive Date: 20190904
  Receipt Date: 20190904
  Transmission Date: 20191005
  Serious: Yes (Other)
  Sender: FDA-Public Use
  Company Number: US-ROCHE-2367395

PATIENT
  Sex: Female
  Weight: 31 kg

DRUGS (1)
  1. XOLAIR [Suspect]
     Active Substance: OMALIZUMAB
     Indication: ASTHMA
     Route: 065
     Dates: start: 20190104

REACTIONS (6)
  - Hyperaesthesia [Recovered/Resolved]
  - Depression [Recovered/Resolved]
  - Bone pain [Recovered/Resolved]
  - Suicidal ideation [Recovered/Resolved]
  - Feeling cold [Recovered/Resolved]
  - Skin burning sensation [Recovered/Resolved]
